FAERS Safety Report 4476646-1 (Version None)
Quarter: 2004Q4

REPORT INFORMATION
  Report Type: 
  Country: None (occurrence: None)
  Receive Date: 20041015
  Receipt Date: 20041015
  Transmission Date: 20050328
  Serious: Yes (Other)
  Sender: FDA-Public Use
  Company Number: None

PATIENT
  Sex: Female
  Weight: 75 kg

DRUGS (2)
  1. OXALIPLATIN [Suspect]
     Indication: COLORECTAL CANCER METASTATIC
     Dosage: 68.4 MG X 1 DOSE VIA HEPATIC PERFUSION
     Dates: start: 20040921
  2. OXALIPLATIN [Suspect]
     Indication: METASTASES TO LIVER
     Dosage: 68.4 MG X 1 DOSE VIA HEPATIC PERFUSION
     Dates: start: 20040921

REACTIONS (2)
  - BLOOD GLUCOSE INCREASED [None]
  - POST PROCEDURAL COMPLICATION [None]
